FAERS Safety Report 25653990 (Version 1)
Quarter: 2025Q3

REPORT INFORMATION
  Report Type: Spontaneous
  Country: US (occurrence: US)
  Receive Date: 20250807
  Receipt Date: 20250807
  Transmission Date: 20251020
  Serious: Yes (Other)
  Sender: BRISTOL-MYERS SQUIBB COMPANY
  Company Number: US-BRISTOL-MYERS SQUIBB COMPANY-2025-107151

PATIENT
  Age: 43 Year
  Sex: Male
  Weight: 90.72 kg

DRUGS (10)
  1. COBENFY [Suspect]
     Active Substance: TROSPIUM CHLORIDE\XANOMELINE
     Indication: Schizoaffective disorder
     Dosage: DOSE AND STRENGTH: 125MG/30MG
     Route: 048
     Dates: start: 20250723
  2. ABILIFY [Suspect]
     Active Substance: ARIPIPRAZOLE
     Indication: Schizoaffective disorder
  3. ABILIFY [Suspect]
     Active Substance: ARIPIPRAZOLE
  4. ABILIFY [Suspect]
     Active Substance: ARIPIPRAZOLE
  5. ABILIFY [Suspect]
     Active Substance: ARIPIPRAZOLE
     Dates: end: 20250730
  6. DEPAKOTE [Concomitant]
     Active Substance: DIVALPROEX SODIUM
     Indication: Product used for unknown indication
     Dosage: EVERY NIGHT AT BEDTIME
  7. BENZTROPINE [Concomitant]
     Active Substance: BENZTROPINE
     Indication: Product used for unknown indication
  8. BENZTROPINE [Concomitant]
     Active Substance: BENZTROPINE
  9. BUSPIRONE [Concomitant]
     Active Substance: BUSPIRONE HYDROCHLORIDE
     Indication: Product used for unknown indication
  10. HYDROXYZINE [Concomitant]
     Active Substance: HYDROXYZINE HYDROCHLORIDE
     Indication: Product used for unknown indication
     Dosage: TWICE A DAY AS NEEDED (BUT PATIENT HAS NOT BEEN TAKING)

REACTIONS (4)
  - Delusion [Unknown]
  - Psychiatric symptom [Unknown]
  - Off label use [Unknown]
  - Condition aggravated [Unknown]

NARRATIVE: CASE EVENT DATE: 20250730
